FAERS Safety Report 16431306 (Version 1)
Quarter: 2019Q2

REPORT INFORMATION
  Report Type: Report from Study
  Country: US (occurrence: US)
  Receive Date: 20190614
  Receipt Date: 20190614
  Transmission Date: 20190711
  Serious: Yes (Other)
  Sender: FDA-Public Use
  Company Number: US-TAKEDA-2018TUS010244

PATIENT
  Sex: Female

DRUGS (1)
  1. PONATINIB [Suspect]
     Active Substance: PONATINIB
     Indication: MYELODYSPLASTIC SYNDROME
     Dosage: 15 MILLIGRAM, QD
     Route: 048
     Dates: start: 20180416

REACTIONS (5)
  - Palpitations [Unknown]
  - Hypertension [Unknown]
  - Blood pressure increased [Recovered/Resolved]
  - Neoplasm progression [Unknown]
  - Off label use [Unknown]
